FAERS Safety Report 17119653 (Version 1)
Quarter: 2019Q4

REPORT INFORMATION
  Report Type: Spontaneous
  Country: GB (occurrence: GB)
  Receive Date: 20191206
  Receipt Date: 20191206
  Transmission Date: 20200122
  Serious: Yes (Life-Threatening, Hospitalization)
  Sender: FDA-Public Use
  Company Number: GB-TEVA-2019-GB-1147442

PATIENT
  Age: 36 Year
  Sex: Female
  Weight: 51 kg

DRUGS (10)
  1. VENLAFAXINE HYDROCHLORIDE. [Concomitant]
     Active Substance: VENLAFAXINE HYDROCHLORIDE
  2. PARACETAMOL [Concomitant]
     Active Substance: ACETAMINOPHEN
  3. PROMAZINE HYDROCHLORIDE [Concomitant]
     Active Substance: PROMAZINE HYDROCHLORIDE
  4. ACCORD-UK LAMOTRIGINE [Concomitant]
  5. CLONAZEPAM. [Concomitant]
     Active Substance: CLONAZEPAM
  6. CLARITHROMYCIN CITRATE [Suspect]
     Active Substance: CLARITHROMYCIN CITRATE
     Indication: SKIN INFECTION
     Dosage: 1000 MG
     Route: 048
     Dates: start: 20191024, end: 20191027
  7. GENERICS UK CARBAMAZEPINE [Suspect]
     Active Substance: CARBAMAZEPINE
     Indication: BIPOLAR DISORDER
     Route: 048
     Dates: start: 20170701
  8. HYDROCORTISONE. [Concomitant]
     Active Substance: HYDROCORTISONE
  9. NALTREXONE HYDROCHLORIDE. [Concomitant]
     Active Substance: NALTREXONE HYDROCHLORIDE
  10. PROPRANOLOL HYDROCHLORIDE. [Concomitant]
     Active Substance: PROPRANOLOL HYDROCHLORIDE

REACTIONS (12)
  - Vomiting [Recovered/Resolved with Sequelae]
  - Fatigue [Recovering/Resolving]
  - Syncope [Unknown]
  - Nystagmus [Recovered/Resolved]
  - Dehydration [Recovered/Resolved]
  - Hypotension [Recovered/Resolved with Sequelae]
  - Loss of consciousness [Recovered/Resolved]
  - Vertigo [Recovered/Resolved with Sequelae]
  - Drug interaction [Unknown]
  - Aphasia [Unknown]
  - Hyponatraemia [Recovered/Resolved]
  - Anal incontinence [Recovered/Resolved]

NARRATIVE: CASE EVENT DATE: 20191027
